FAERS Safety Report 9114483 (Version 1)
Quarter: 2013Q1

REPORT INFORMATION
  Report Type: Spontaneous
  Country: PH (occurrence: PH)
  Receive Date: 20130208
  Receipt Date: 20130208
  Transmission Date: 20140127
  Serious: Yes (Other)
  Sender: FDA-Public Use
  Company Number: PH-MERCK-1302PHL001025

PATIENT
  Age: 55 Year
  Sex: Male

DRUGS (2)
  1. JANUMET [Suspect]
     Dosage: 1 TABLET OF 50/500 MG, BID
     Route: 048
     Dates: start: 201301
  2. JANUMET [Suspect]
     Dosage: 1 TABLET OF 50/500 MG, QD
     Route: 048

REACTIONS (5)
  - Weight decreased [Unknown]
  - Gallbladder operation [Unknown]
  - Blood cholesterol increased [Unknown]
  - Blood glucose increased [Unknown]
  - Inappropriate schedule of drug administration [Unknown]
